FAERS Safety Report 7079631-9 (Version None)
Quarter: 2010Q4

REPORT INFORMATION
  Report Type: 
  Country: None (occurrence: None)
  Receive Date: 20101102
  Receipt Date: 20101020
  Transmission Date: 20110411
  Serious: Yes (Hospitalization)
  Sender: FDA-Public Use
  Company Number: PHHY2010AR70414

PATIENT
  Sex: Female

DRUGS (1)
  1. DIOVAN [Suspect]
     Dosage: 1 TABLET DAILY
     Route: 048
     Dates: end: 20100730

REACTIONS (2)
  - AORTIC ANEURYSM [None]
  - PROSTHESIS IMPLANTATION [None]
